FAERS Safety Report 9240835 (Version 1)
Quarter: 2013Q2

REPORT INFORMATION
  Report Type: Spontaneous
  Country: US (occurrence: US)
  Receive Date: 20130418
  Receipt Date: 20130418
  Transmission Date: 20140414
  Serious: No
  Sender: FDA-Public Use
  Company Number: US-SANOFI-AVENTIS-2013SA002383

PATIENT
  Age: 76 Year
  Sex: Male

DRUGS (2)
  1. ENOXAPARIN SODIUM - WINTHROP [Suspect]
     Indication: ANTICOAGULANT THERAPY
     Dates: start: 20130109
  2. COUMADIN [Concomitant]

REACTIONS (2)
  - Headache [Unknown]
  - Skin haemorrhage [Unknown]
